FAERS Safety Report 11219777 (Version 1)
Quarter: 2015Q2

REPORT INFORMATION
  Report Type: Spontaneous
  Country: GB (occurrence: GB)
  Receive Date: 20150625
  Receipt Date: 20150625
  Transmission Date: 20150821
  Serious: Yes (Disabling)
  Sender: FDA-Public Use
  Company Number: GB-PFIZER INC-2015209272

PATIENT
  Age: 61 Year
  Sex: Female
  Weight: 71 kg

DRUGS (19)
  1. ADCAL /00056901/ [Concomitant]
     Active Substance: CARBAZOCHROME
     Dosage: 1 DF, 2X/DAY
     Dates: start: 20140224
  2. PANTOPRAZOLE [Concomitant]
     Active Substance: PANTOPRAZOLE SODIUM
     Dosage: 1 DF, 1X/DAY
     Dates: start: 20131022
  3. VISTA-METHASONE [Concomitant]
     Dosage: INSTIL 2 OR 3 DROPS INTO EACH NOSTRIL.
     Dates: start: 20150609
  4. PSEUDOEPHEDRINE [Concomitant]
     Active Substance: PSEUDOEPHEDRINE
     Dosage: 1 DF, 3X/DAY
     Dates: start: 20150410, end: 20150417
  5. BECONASE AQ [Concomitant]
     Active Substance: BECLOMETHASONE DIPROPIONATE MONOHYDRATE
     Dosage: 2 DF, 2X/DAY
     Dates: start: 20140312, end: 20150327
  6. IBUPROFEN. [Concomitant]
     Active Substance: IBUPROFEN
     Dosage: 1 DF, 3X/DAY
     Dates: start: 20150327
  7. BUTRANS [Concomitant]
     Active Substance: BUPRENORPHINE
     Dosage: 1 DF, WEEKLY
     Dates: start: 20150501, end: 20150529
  8. MEBEVERINE HYDROCHLORIDE [Concomitant]
     Active Substance: MEBEVERINE HYDROCHLORIDE
     Dosage: 1 DF, 2X/DAY
     Dates: start: 20131030
  9. SIMVASTATIN. [Concomitant]
     Active Substance: SIMVASTATIN
     Dosage: AT NIGHT.
     Dates: start: 20131107
  10. LAXIDO [Concomitant]
     Active Substance: POLYETHYLENE GLYCOL 3350\POTASSIUM CHLORIDE\SODIUM BICARBONATE\SODIUM CHLORIDE
     Dosage: 2 DF, 2X/DAY
     Dates: start: 20140425, end: 20150327
  11. PROCHLORPERAZINE. [Concomitant]
     Active Substance: PROCHLORPERAZINE
     Dosage: 1 DF, 3X/DAY
     Dates: start: 20130213
  12. FYBOGEL [Concomitant]
     Active Substance: PLANTAGO OVATA SEED
     Dosage: USE AS DIRECTED.
     Dates: start: 20140226
  13. LEVOTHYROXINE [Concomitant]
     Active Substance: LEVOTHYROXINE
     Dosage: 1 DF, 1X/DAY
     Dates: start: 20130213
  14. PEPTAC /00550802/ [Concomitant]
     Dosage: 5ML OR 10ML
     Dates: start: 20140528, end: 20150327
  15. DEPO-MEDRONE [Suspect]
     Active Substance: METHYLPREDNISOLONE
     Dosage: UNK
     Dates: start: 20150610
  16. CETIRIZINE [Concomitant]
     Active Substance: CETIRIZINE HYDROCHLORIDE
     Dosage: 1 DF, 1X/DAY
     Dates: start: 20131119
  17. HYPROMELLOSE [Concomitant]
     Active Substance: HYPROMELLOSES
     Dosage: THREE TO FOUR DROPS A DAY.
     Dates: start: 20140220
  18. MATRIFEN [Concomitant]
     Active Substance: FENTANYL
     Dosage: 1 DF, UNK
     Dates: start: 20131211, end: 20150501
  19. PARACETAMOL [Concomitant]
     Active Substance: ACETAMINOPHEN
     Dosage: WHEN REQUIRED.
     Dates: start: 20130213

REACTIONS (1)
  - Pain [Unknown]

NARRATIVE: CASE EVENT DATE: 20150610
